FAERS Safety Report 17004355 (Version 1)
Quarter: 2019Q4

REPORT INFORMATION
  Report Type: Spontaneous
  Country: CN (occurrence: CN)
  Receive Date: 20191107
  Receipt Date: 20191107
  Transmission Date: 20200122
  Serious: Yes (Other)
  Sender: FDA-Public Use
  Company Number: CN-PFIZER INC-2019476695

PATIENT
  Age: 4 Decade
  Sex: Female

DRUGS (6)
  1. ZYVOX [Suspect]
     Active Substance: LINEZOLID
     Dosage: 600 MG, 1X/DAY (EVERY NIGHT) (FOR ABOUT TWO MONTHS)
     Route: 048
  2. RIFAMPIN. [Concomitant]
     Active Substance: RIFAMPIN
     Dosage: UNK
  3. PYRAZINAMIDE. [Concomitant]
     Active Substance: PYRAZINAMIDE
     Dosage: UNK
  4. ISONIAZID. [Concomitant]
     Active Substance: ISONIAZID
     Dosage: UNK
  5. ETHAMBUTOL [Concomitant]
     Active Substance: ETHAMBUTOL HYDROCHLORIDE
     Dosage: UNK
  6. MOXIFLOXACIN. [Concomitant]
     Active Substance: MOXIFLOXACIN
     Dosage: UNK

REACTIONS (3)
  - Neuropathy peripheral [Unknown]
  - Off label use [Unknown]
  - Hypoaesthesia [Unknown]
